FAERS Safety Report 11250757 (Version 1)
Quarter: 2015Q3

REPORT INFORMATION
  Report Type: Spontaneous
  Country: US (occurrence: US)
  Receive Date: 20150708
  Receipt Date: 20150708
  Transmission Date: 20151125
  Serious: No
  Sender: FDA-Public Use
  Company Number: US-ELI_LILLY_AND_COMPANY-US201104001243

PATIENT
  Age: 26 Year
  Sex: Female

DRUGS (2)
  1. SYMBYAX [Suspect]
     Active Substance: FLUOXETINE HYDROCHLORIDE\OLANZAPINE
     Dosage: 6/25 MG, QD
     Dates: start: 20110311
  2. SYMBYAX [Suspect]
     Active Substance: FLUOXETINE HYDROCHLORIDE\OLANZAPINE
     Indication: BIPOLAR DISORDER
     Dosage: 3/25 MG, QD
     Dates: start: 20110311

REACTIONS (3)
  - Sedation [Recovered/Resolved]
  - Incorrect dose administered [Unknown]
  - Feeling jittery [Recovered/Resolved]
